FAERS Safety Report 6184571-3 (Version None)
Quarter: 2009Q2

REPORT INFORMATION
  Report Type: 
  Country: None (occurrence: None)
  Receive Date: 20090508
  Receipt Date: 20090501
  Transmission Date: 20091009
  Serious: No
  Sender: FDA-Public Use
  Company Number: GB-EISAI INC.-E2020-04533-SPO-GB

PATIENT
  Sex: Female

DRUGS (4)
  1. ARICEPT [Suspect]
     Indication: DRUG USE FOR UNKNOWN INDICATION
     Route: 048
  2. ARICEPT [Suspect]
     Route: 048
  3. DILTIAZEM [Suspect]
     Indication: DRUG USE FOR UNKNOWN INDICATION
     Dosage: UNKNOWN
     Route: 065
  4. ZONEGRAN [Concomitant]

REACTIONS (2)
  - ACUTE CORONARY SYNDROME [None]
  - FALL [None]
